FAERS Safety Report 6192265-3 (Version None)
Quarter: 2009Q2

REPORT INFORMATION
  Report Type: 
  Country: None (occurrence: None)
  Receive Date: 20090515
  Receipt Date: 20090511
  Transmission Date: 20091009
  Serious: Yes (Death, Other)
  Sender: FDA-Public Use
  Company Number: PHEH2007US03273

PATIENT
  Sex: Male
  Weight: 116.55 kg

DRUGS (23)
  1. ZOMETA [Suspect]
     Indication: METASTASES TO BONE
     Dosage: 4 MG, QMO
     Route: 042
     Dates: start: 20030901, end: 20041201
  2. ZOMETA [Suspect]
     Indication: PROSTATE CANCER
  3. TOPROL-XL [Concomitant]
  4. BENICAR [Concomitant]
  5. LUPRON [Concomitant]
  6. CLINDAMYCIN HCL [Concomitant]
  7. VICOPROFEN [Concomitant]
  8. CASODEX [Concomitant]
     Dosage: DAILY
  9. REMERON [Concomitant]
  10. EFFEXOR [Concomitant]
  11. HALDOL [Concomitant]
     Dosage: UNK
     Dates: start: 20080101
  12. PHENOBARBITAL [Concomitant]
     Dosage: UNK
     Dates: start: 20080101
  13. LIDOCAINE [Concomitant]
     Dosage: UNK
     Dates: start: 20080101
  14. MORPHINE SULFATE [Concomitant]
  15. LIDODERM [Concomitant]
     Dosage: UNK
     Dates: start: 20080101
  16. ALBUTEROL [Concomitant]
  17. FUROSEMIDE [Concomitant]
  18. ELAVIL [Concomitant]
  19. GABAPENTIN [Concomitant]
  20. RESTORIL [Concomitant]
  21. PERIDEX [Concomitant]
  22. OXYGEN [Concomitant]
  23. DECADRON                                /NET/ [Concomitant]

REACTIONS (34)
  - AGITATION [None]
  - ANXIETY [None]
  - ASTHENIA [None]
  - BASAL CELL CARCINOMA [None]
  - BONE DISORDER [None]
  - BONE LESION [None]
  - BONE OPERATION [None]
  - DECREASED INTEREST [None]
  - GENERAL PHYSICAL HEALTH DETERIORATION [None]
  - GENERALISED OEDEMA [None]
  - GINGIVITIS [None]
  - GLOSSODYNIA [None]
  - HYPOAESTHESIA [None]
  - IMPAIRED HEALING [None]
  - LETHARGY [None]
  - LUMBAR SPINAL STENOSIS [None]
  - MICROGRAPHIC SKIN SURGERY [None]
  - NECK PAIN [None]
  - ORAL MUCOSAL ERYTHEMA [None]
  - OSTEOARTHRITIS [None]
  - OSTEONECROSIS [None]
  - PAIN [None]
  - PAIN IN JAW [None]
  - PERIODONTAL DISEASE [None]
  - PRIMARY SEQUESTRUM [None]
  - PROSTATE CANCER [None]
  - PULMONARY CONGESTION [None]
  - RESPIRATORY DISTRESS [None]
  - RESTLESSNESS [None]
  - SQUAMOUS CELL CARCINOMA [None]
  - TONGUE INJURY [None]
  - TONGUE ULCERATION [None]
  - TOOTHACHE [None]
  - WEIGHT DECREASED [None]
